FAERS Safety Report 9197854 (Version 1)
Quarter: 2013Q1

REPORT INFORMATION
  Report Type: Spontaneous
  Country: US (occurrence: US)
  Receive Date: 20130328
  Receipt Date: 20130328
  Transmission Date: 20140127
  Serious: Yes (Other)
  Sender: FDA-Public Use
  Company Number: US-BAYER-2013-036050

PATIENT
  Age: 47 Year
  Sex: Male
  Weight: 52 kg

DRUGS (1)
  1. ASPIRIN ^BAYER^ [Suspect]
     Indication: HEADACHE
     Dosage: 2 DF, ONCE
     Route: 048
     Dates: start: 201303, end: 201303

REACTIONS (3)
  - Ocular discomfort [Not Recovered/Not Resolved]
  - Abnormal sensation in eye [Not Recovered/Not Resolved]
  - Drug ineffective [Not Recovered/Not Resolved]
